FAERS Safety Report 12685300 (Version 1)
Quarter: 2016Q3

REPORT INFORMATION
  Report Type: Spontaneous
  Country: US (occurrence: US)
  Receive Date: 20160825
  Receipt Date: 20160825
  Transmission Date: 20161109
  Serious: Yes (Hospitalization)
  Sender: FDA-Public Use
  Company Number: US-VERTEX PHARMACEUTICALS-2016-004963

PATIENT
  Sex: Female

DRUGS (6)
  1. OMEPRAZOLE. [Concomitant]
     Active Substance: OMEPRAZOLE
  2. ORKAMBI [Suspect]
     Active Substance: IVACAFTOR\LUMACAFTOR
     Indication: CYSTIC FIBROSIS
     Dosage: 400-250MG, BID
     Route: 048
     Dates: start: 20150715
  3. AQUADEKS [Concomitant]
     Active Substance: MINERALS\VITAMINS
  4. CAYSTON [Concomitant]
     Active Substance: AZTREONAM
  5. ATROVENT [Concomitant]
     Active Substance: IPRATROPIUM BROMIDE
  6. PREDNISONE. [Concomitant]
     Active Substance: PREDNISONE

REACTIONS (1)
  - Infective pulmonary exacerbation of cystic fibrosis [Unknown]
